FAERS Safety Report 17432853 (Version 1)
Quarter: 2020Q1

REPORT INFORMATION
  Report Type: Spontaneous
  Country: US (occurrence: US)
  Receive Date: 20200219
  Receipt Date: 20200219
  Transmission Date: 20200409
  Serious: Yes (Other)
  Sender: FDA-Public Use
  Company Number: US-ABBVIE-20K-163-3273455-00

PATIENT
  Sex: Female

DRUGS (1)
  1. SYNTHROID [Suspect]
     Active Substance: LEVOTHYROXINE SODIUM
     Indication: PRODUCT USED FOR UNKNOWN INDICATION
     Route: 048

REACTIONS (7)
  - Blood cholesterol increased [Unknown]
  - Rash [Unknown]
  - Petit mal epilepsy [Unknown]
  - Unevaluable event [Unknown]
  - Parkinson^s disease [Unknown]
  - Hypersomnia [Unknown]
  - Alopecia [Unknown]
